FAERS Safety Report 9689789 (Version 1)
Quarter: 2013Q4

REPORT INFORMATION
  Report Type: Spontaneous
  Country: PT (occurrence: PT)
  Receive Date: 20131115
  Receipt Date: 20131115
  Transmission Date: 20140711
  Serious: Yes (Other)
  Sender: FDA-Public Use
  Company Number: PT-JNJFOC-20131105961

PATIENT
  Age: 76 Year
  Sex: Male

DRUGS (5)
  1. INVEGA [Suspect]
     Indication: HALLUCINATION, AUDITORY
     Dosage: AT DINNER
     Route: 048
     Dates: start: 20131106
  2. INVEGA [Suspect]
     Indication: DEPRESSION
     Dosage: AT DINNER
     Route: 048
     Dates: start: 20131106
  3. DIAZEPAM [Concomitant]
     Indication: PRODUCT USED FOR UNKNOWN INDICATION
     Route: 065
  4. PAROXETINE [Concomitant]
     Indication: PRODUCT USED FOR UNKNOWN INDICATION
     Route: 065
  5. DOGMATIL FORTE [Concomitant]
     Indication: PRODUCT USED FOR UNKNOWN INDICATION
     Route: 065

REACTIONS (4)
  - Drug dependence [Unknown]
  - Feeling abnormal [Unknown]
  - Chills [Unknown]
  - Off label use [Unknown]
